FAERS Safety Report 10041674 (Version 3)
Quarter: 2014Q2

REPORT INFORMATION
  Report Type: Spontaneous
  Country: IT (occurrence: None)
  Receive Date: 20140325
  Receipt Date: 20140624
  Transmission Date: 20141212
  Serious: Yes (Other)
  Sender: FDA-Public Use
  Company Number: AUR-APL-2014-03407

PATIENT
  Age: 41 Year
  Sex: Male

DRUGS (1)
  1. AMOXICILLINA [Suspect]
     Indication: BRONCHITIS
     Dosage: 2GM , TOTAL, ORAL
     Route: 048
     Dates: start: 20140207, end: 20140207

REACTIONS (4)
  - Pruritus generalised [None]
  - Rash erythematous [None]
  - Pruritus generalised [None]
  - Anaphylactic reaction [None]
